FAERS Safety Report 12831437 (Version 5)
Quarter: 2018Q3

REPORT INFORMATION
  Report Type: Report from Study
  Country: None (occurrence: US)
  Receive Date: 20161008
  Receipt Date: 20180929
  Transmission Date: 20181010
  Serious: Yes (Other)
  Sender: FDA-Public Use
  Company Number: US-ABBVIE-16K-163-1746032-00

PATIENT
  Sex: Male

DRUGS (4)
  1. HUMIRA [Suspect]
     Active Substance: ADALIMUMAB
     Dosage: DOSAGE DECREASED/DURATION SHORTENED
     Route: 058
     Dates: start: 201512
  2. HUMIRA [Suspect]
     Active Substance: ADALIMUMAB
     Indication: RHEUMATOID ARTHRITIS
     Route: 058
  3. HUMIRA [Suspect]
     Active Substance: ADALIMUMAB
     Route: 058
  4. HUMIRA [Suspect]
     Active Substance: ADALIMUMAB
     Route: 058

REACTIONS (22)
  - Joint swelling [Recovered/Resolved]
  - Depression [Unknown]
  - Post procedural infection [Unknown]
  - Carpal tunnel syndrome [Unknown]
  - Visual impairment [Unknown]
  - Balance disorder [Recovered/Resolved]
  - Exostosis [Unknown]
  - Fibromyalgia [Not Recovered/Not Resolved]
  - Rheumatoid arthritis [Not Recovered/Not Resolved]
  - Back pain [Unknown]
  - Malaise [Unknown]
  - Inappropriate schedule of drug administration [Unknown]
  - Gait inability [Unknown]
  - Drug effect delayed [Unknown]
  - Cyst [Recovering/Resolving]
  - Dysphonia [Unknown]
  - Blood pressure increased [Unknown]
  - Pain in extremity [Unknown]
  - Impaired healing [Unknown]
  - Pain [Unknown]
  - Wrist fracture [Recovered/Resolved]
  - Arthralgia [Unknown]

NARRATIVE: CASE EVENT DATE: 2015
